FAERS Safety Report 5305592-6 (Version None)
Quarter: 2007Q2

REPORT INFORMATION
  Report Type: 
  Country: None (occurrence: None)
  Receive Date: 20070419
  Receipt Date: 20070419
  Transmission Date: 20071010
  Serious: No
  Sender: FDA-Public Use
  Company Number: None

PATIENT
  Sex: Male
  Weight: 127.0072 kg

DRUGS (2)
  1. LEVAQUIN [Suspect]
     Indication: ANTIBIOTIC PROPHYLAXIS
     Dosage: 1 TAB   QD   PO
     Route: 048
     Dates: start: 20070411, end: 20070417
  2. LEVAQUIN [Suspect]
     Indication: POSTOPERATIVE CARE
     Dosage: 1 TAB   QD   PO
     Route: 048
     Dates: start: 20070411, end: 20070417

REACTIONS (3)
  - IMPAIRED SELF-CARE [None]
  - MUSCLE SPASMS [None]
  - PAIN [None]
